FAERS Safety Report 7225632-7 (Version None)
Quarter: 2011Q1

REPORT INFORMATION
  Report Type: 
  Country: None (occurrence: None)
  Receive Date: 20110107
  Receipt Date: 20110107
  Transmission Date: 20110831
  Serious: Yes (Other)
  Sender: FDA-Public Use
  Company Number: None

PATIENT
  Age: 66 Year
  Sex: Female

DRUGS (18)
  1. PLAQUENIL TAB 200MG [Concomitant]
  2. KLONOPIN TAB 0.5MG [Concomitant]
  3. IBUPROFEN POW [Concomitant]
  4. FOLIC ACID TAB 1MG [Concomitant]
  5. FORTEO [Suspect]
     Indication: OSTEOPOROSIS
     Dosage: 20 MCG. QD SC
     Route: 058
     Dates: start: 20101118
  6. METHOTREXATE TAB  25MG [Concomitant]
  7. ZOLOFT TAB 100MG [Concomitant]
  8. LISINOPRIN TAB 0.5MG [Concomitant]
  9. PLAVIX [Concomitant]
  10. CLONIDINE TAB 0.1MG [Concomitant]
  11. SIMVASTATIN [Concomitant]
  12. PREDNISONE [Concomitant]
  13. LASIX TAB 40MG [Concomitant]
  14. MIRTAZAPINE TAB 45MG [Concomitant]
  15. METOPROLOL TAB 50MG ER [Concomitant]
  16. WELLBUTRIN TAB 150MG SA [Concomitant]
  17. NORVASC TAB 5MG [Concomitant]
  18. PRIMIDONE TAB 50MG [Concomitant]

REACTIONS (3)
  - SKIN ULCER [None]
  - PARAESTHESIA [None]
  - OEDEMA PERIPHERAL [None]
